FAERS Safety Report 13706721 (Version 3)
Quarter: 2019Q3

REPORT INFORMATION
  Report Type: Spontaneous
  Country: US (occurrence: US)
  Receive Date: 20170630
  Receipt Date: 20190814
  Transmission Date: 20191004
  Serious: No
  Sender: FDA-Public Use
  Company Number: US-JNJFOC-20170606240

PATIENT
  Age: 12 Year
  Sex: Male

DRUGS (10)
  1. RISPERIDONE. [Suspect]
     Active Substance: RISPERIDONE
     Indication: BIPOLAR DISORDER
     Route: 048
     Dates: start: 1996, end: 1997
  2. RISPERIDONE. [Suspect]
     Active Substance: RISPERIDONE
     Route: 048
     Dates: start: 20130903, end: 20131206
  3. RISPERIDONE. [Suspect]
     Active Substance: RISPERIDONE
     Route: 048
     Dates: start: 2000, end: 2001
  4. SEROQUEL [Concomitant]
     Active Substance: QUETIAPINE FUMARATE
     Dosage: 50-200 MG
     Dates: start: 2006, end: 2012
  5. RISPERIDONE. [Suspect]
     Active Substance: RISPERIDONE
     Route: 048
     Dates: start: 2007, end: 20130912
  6. RISPERIDONE. [Suspect]
     Active Substance: RISPERIDONE
     Route: 048
     Dates: start: 1999, end: 20000412
  7. RISPERIDONE. [Suspect]
     Active Substance: RISPERIDONE
     Route: 048
     Dates: start: 2002, end: 2004
  8. ZYPREXA [Concomitant]
     Active Substance: OLANZAPINE
     Dates: start: 2003, end: 2010
  9. RISPERIDONE. [Suspect]
     Active Substance: RISPERIDONE
     Route: 048
     Dates: start: 1997, end: 1999
  10. RISPERIDONE. [Suspect]
     Active Substance: RISPERIDONE
     Route: 048
     Dates: start: 20000412, end: 20000824

REACTIONS (6)
  - Galactorrhoea [Unknown]
  - Treatment noncompliance [Unknown]
  - Gynaecomastia [Unknown]
  - Emotional distress [Unknown]
  - Abnormal weight gain [Unknown]
  - Extrapyramidal disorder [Unknown]

NARRATIVE: CASE EVENT DATE: 1996
